FAERS Safety Report 14428117 (Version 3)
Quarter: 2018Q1

REPORT INFORMATION
  Report Type: Report from Study
  Country: US (occurrence: US)
  Receive Date: 20180123
  Receipt Date: 20180323
  Transmission Date: 20180509
  Serious: Yes (Other)
  Sender: FDA-Public Use
  Company Number: US-AMGEN-USASL2017160554

PATIENT
  Age: 58 Year
  Sex: Male
  Weight: 97.52 kg

DRUGS (11)
  1. TRILIPIX [Concomitant]
     Active Substance: FENOFIBRIC ACID
     Dosage: UNK
  2. ATORVASTATIN [Concomitant]
     Active Substance: ATORVASTATIN
     Dosage: UNK
  3. MONTELUKAST [Concomitant]
     Active Substance: MONTELUKAST SODIUM
     Dosage: UNK
  4. ZYRTEC [Concomitant]
     Active Substance: CETIRIZINE HYDROCHLORIDE
  5. CEFUROXIME. [Concomitant]
     Active Substance: CEFUROXIME
     Dosage: 500 MG, UNK
  6. REPATHA [Suspect]
     Active Substance: EVOLOCUMAB
     Indication: BLOOD CHOLESTEROL INCREASED
     Dosage: 140 MG, Q2WK
     Route: 058
     Dates: start: 20171021, end: 20171225
  7. FLONASE [Concomitant]
     Active Substance: FLUTICASONE PROPIONATE
     Dosage: UNK
  8. WELCHOL [Concomitant]
     Active Substance: COLESEVELAM HYDROCHLORIDE
     Dosage: 625 MG, UNK
  9. COQ10 [Concomitant]
     Active Substance: UBIDECARENONE
     Dosage: 100 MG, UNK
  10. OLOPATADINE. [Concomitant]
     Active Substance: OLOPATADINE
     Dosage: UNK
  11. ASPIRIN. [Concomitant]
     Active Substance: ASPIRIN
     Dosage: UNK

REACTIONS (5)
  - Pruritus [Unknown]
  - Nasopharyngitis [Not Recovered/Not Resolved]
  - Asthma [Unknown]
  - Pharyngeal disorder [Unknown]
  - Sinusitis [Unknown]

NARRATIVE: CASE EVENT DATE: 2017
